FAERS Safety Report 15757584 (Version 2)
Quarter: 2019Q4

REPORT INFORMATION
  Report Type: Spontaneous
  Country: MY (occurrence: MY)
  Receive Date: 20181224
  Receipt Date: 20191209
  Transmission Date: 20200122
  Serious: Yes (Hospitalization, Other)
  Sender: FDA-Public Use
  Company Number: MY-B.I. PHARMACEUTICALS,INC./RIDGEFIELD-2018-BI-060943

PATIENT
  Sex: Female

DRUGS (1)
  1. PRADAXA [Suspect]
     Active Substance: DABIGATRAN ETEXILATE MESYLATE
     Indication: ATRIAL FIBRILLATION
     Route: 048

REACTIONS (2)
  - Cerebrovascular accident [Recovering/Resolving]
  - Drug ineffective [Recovering/Resolving]
